FAERS Safety Report 6028997-7 (Version None)
Quarter: 2008Q4

REPORT INFORMATION
  Report Type: 
  Country: None (occurrence: None)
  Receive Date: 20081231
  Receipt Date: 20081218
  Transmission Date: 20090506
  Serious: Yes (Hospitalization)
  Sender: FDA-Public Use
  Company Number: 1000003312

PATIENT
  Age: 56 Year
  Sex: Male
  Weight: 60 kg

DRUGS (4)
  1. ESCITALOPRM              (ESCITALOPRAM OXALATE) [Suspect]
     Dosage: 20 MG (10 MG, 1 IN 1 D) , ORAL
     Route: 048
     Dates: start: 20080602, end: 20080630
  2. TAXOL [Concomitant]
  3. HERBAL [Concomitant]
  4. PRAZEPAM [Concomitant]

REACTIONS (2)
  - AGRANULOCYTOSIS [None]
  - DRUG TOXICITY [None]
